FAERS Safety Report 23719395 (Version 3)
Quarter: 2024Q3

REPORT INFORMATION
  Report Type: Spontaneous
  Country: US (occurrence: US)
  Receive Date: 20240408
  Receipt Date: 20240710
  Transmission Date: 20241016
  Serious: No
  Sender: LUPIN
  Company Number: US-LUPIN PHARMACEUTICALS INC.-2024-02782

PATIENT

DRUGS (1)
  1. BROMFENAC [Suspect]
     Active Substance: BROMFENAC
     Indication: Visual impairment
     Dosage: 1 DROP, QD
     Route: 047

REACTIONS (5)
  - Eye pain [Unknown]
  - Product use complaint [Unknown]
  - Product packaging quantity issue [Unknown]
  - Product substitution issue [Unknown]
  - Liquid product physical issue [Unknown]
